FAERS Safety Report 7968712-0 (Version None)
Quarter: 2011Q4

REPORT INFORMATION
  Report Type: 
  Country: None (occurrence: None)
  Receive Date: 20111209
  Receipt Date: 20111130
  Transmission Date: 20120403
  Serious: Yes (Other)
  Sender: FDA-Public Use
  Company Number: US-JNJFOC-20111200665

PATIENT
  Sex: Male
  Weight: 69.85 kg

DRUGS (2)
  1. REMICADE [Suspect]
     Indication: CROHN'S DISEASE
     Route: 042
     Dates: start: 20111110
  2. REMICADE [Suspect]
     Route: 042

REACTIONS (1)
  - ADVERSE EVENT [None]
